FAERS Safety Report 6285625-3 (Version None)
Quarter: 2009Q3

REPORT INFORMATION
  Report Type: 
  Country: None (occurrence: None)
  Receive Date: 20090724
  Receipt Date: 20090715
  Transmission Date: 20100115
  Serious: Yes (Other)
  Sender: FDA-Public Use
  Company Number: ADE# 09-098

PATIENT
  Sex: Female

DRUGS (1)
  1. CLOZAPINE TABLETS, USP, STRENGTH UNKNOWN (CARACO) [Suspect]
     Dosage: FOR QUITE A WHILE

REACTIONS (1)
  - STARING [None]
